FAERS Safety Report 9046641 (Version 1)
Quarter: 2013Q1

REPORT INFORMATION
  Report Type: Spontaneous
  Country: US (occurrence: None)
  Receive Date: 20130125
  Receipt Date: 20130125
  Transmission Date: 20140127
  Serious: No
  Sender: FDA-Public Use
  Company Number: None

PATIENT
  Age: 58 Year
  Sex: Male
  Weight: 70.31 kg

DRUGS (1)
  1. DOCUSATE SODIUM [Suspect]
     Route: 048
     Dates: start: 20130107, end: 20130117

REACTIONS (5)
  - Product taste abnormal [None]
  - Abdominal pain upper [None]
  - Nausea [None]
  - Product odour abnormal [None]
  - Product quality issue [None]
